FAERS Safety Report 7863319-8 (Version None)
Quarter: 2011Q4

REPORT INFORMATION
  Report Type: 
  Country: None (occurrence: None)
  Receive Date: 20111027
  Receipt Date: 20101201
  Transmission Date: 20120403
  Serious: No
  Sender: FDA-Public Use
  Company Number: US-AMGEN-USASP2010007089

PATIENT
  Age: 59 Year
  Sex: Male
  Weight: 81.633 kg

DRUGS (5)
  1. REMERON [Concomitant]
     Dosage: 15 MG, UNK
  2. MULTIVITAMIN                       /00097801/ [Concomitant]
  3. ENBREL [Suspect]
     Indication: PRODUCT USED FOR UNKNOWN INDICATION
     Dosage: 50 MG, QWK
     Route: 058
  4. PREDNISONE [Concomitant]
     Dosage: 10 MG, UNK
  5. VITAMIN D [Concomitant]

REACTIONS (2)
  - RASH GENERALISED [None]
  - NIGHT SWEATS [None]
